FAERS Safety Report 5901326-2 (Version None)
Quarter: 2008Q3

REPORT INFORMATION
  Report Type: 
  Country: None (occurrence: None)
  Receive Date: 20080929
  Receipt Date: 20080922
  Transmission Date: 20090109
  Serious: Yes (Other)
  Sender: FDA-Public Use
  Company Number: SE-BAYER-SE-2007-022493

PATIENT
  Age: 41 Year
  Sex: Female

DRUGS (1)
  1. LEVONORGESTREL [Suspect]
     Indication: MENORRHAGIA
     Route: 015
     Dates: start: 20060501

REACTIONS (1)
  - MYOCARDIAL INFARCTION [None]
